FAERS Safety Report 9510112 (Version 1)
Quarter: 2013Q3

REPORT INFORMATION
  Report Type: Spontaneous
  Country: US (occurrence: US)
  Receive Date: 20130909
  Receipt Date: 20130909
  Transmission Date: 20140515
  Serious: No
  Sender: FDA-Public Use
  Company Number: US-BRISTOL-MYERS SQUIBB COMPANY-18760702

PATIENT
  Age: 59 Year
  Sex: Female
  Weight: 111.56 kg

DRUGS (5)
  1. ABILIFY TABS [Suspect]
     Indication: ANXIETY
     Route: 048
     Dates: start: 2008
  2. ABILIFY TABS [Suspect]
     Indication: DEPRESSION
     Route: 048
     Dates: start: 2008
  3. PROZAC [Concomitant]
     Indication: DEPRESSION
  4. WELLBUTRIN SR [Concomitant]
     Indication: DEPRESSION
     Route: 048
  5. LIPITOR [Concomitant]
     Indication: BLOOD CHOLESTEROL ABNORMAL
     Route: 048

REACTIONS (1)
  - Blood glucose increased [Unknown]
